FAERS Safety Report 9018282 (Version 1)
Quarter: 2013Q1

REPORT INFORMATION
  Report Type: Spontaneous
  Country: US (occurrence: None)
  Receive Date: 20130111
  Receipt Date: 20130111
  Transmission Date: 20140127
  Serious: Yes (Life-Threatening)
  Sender: FDA-Public Use
  Company Number: None

PATIENT
  Age: 70 Year
  Sex: Male
  Weight: 100.5 kg

DRUGS (1)
  1. PHYTONADIONE [Suspect]
     Indication: VITAMIN K
     Dates: start: 20121126, end: 20121126

REACTIONS (2)
  - Anaphylactic reaction [None]
  - Respiratory failure [None]
